FAERS Safety Report 10377373 (Version 1)
Quarter: 2014Q3

REPORT INFORMATION
  Report Type: Spontaneous
  Country: JP (occurrence: JP)
  Receive Date: 20140812
  Receipt Date: 20140812
  Transmission Date: 20150326
  Serious: No
  Sender: FDA-Public Use
  Company Number: PHHY2012JP134346

PATIENT

DRUGS (6)
  1. GLIVEC [Suspect]
     Active Substance: IMATINIB MESYLATE
     Dosage: 300 MG, DAILY
  2. GLIVEC [Suspect]
     Active Substance: IMATINIB MESYLATE
     Indication: CHRONIC MYELOID LEUKAEMIA
     Dosage: 400 MG, DAILY
  3. GLIVEC [Suspect]
     Active Substance: IMATINIB MESYLATE
     Dosage: 200 MG, BID
  4. TASIGNA [Suspect]
     Active Substance: NILOTINIB
     Indication: CHRONIC MYELOID LEUKAEMIA
     Dosage: 600 MG, DAILY
  5. TASIGNA [Suspect]
     Active Substance: NILOTINIB
     Dosage: 400 MG/ DAY
  6. DOMPERIDONE [Concomitant]
     Active Substance: DOMPERIDONE

REACTIONS (5)
  - Nausea [Unknown]
  - Chronic gastritis [Unknown]
  - Electrocardiogram QT prolonged [Unknown]
  - White blood cell count decreased [Recovered/Resolved]
  - Vomiting [Unknown]
